FAERS Safety Report 17304989 (Version 1)
Quarter: 2020Q1

REPORT INFORMATION
  Report Type: Report from Study
  Country: None (occurrence: BE)
  Receive Date: 20200122
  Receipt Date: 20200122
  Transmission Date: 20200409
  Serious: Yes (Hospitalization)
  Sender: FDA-Public Use
  Company Number: BE-ABBVIE-19K-013-2996966-00

PATIENT
  Sex: Male

DRUGS (8)
  1. DUODOPA [Suspect]
     Active Substance: CARBIDOPA\LEVODOPA
     Dosage: MD=5.5ML, CD=4.6ML/HR DURING 16HRS, ED=2ML
     Route: 050
     Dates: start: 20200114
  2. DUODOPA [Suspect]
     Active Substance: CARBIDOPA\LEVODOPA
     Dosage: MD=4.5ML, CD=4.6ML/HR DURING 16HRS, ED=2ML
     Route: 050
     Dates: start: 20191104, end: 20191113
  3. DUODOPA [Suspect]
     Active Substance: CARBIDOPA\LEVODOPA
     Indication: PARKINSON^S DISEASE
     Dosage: MD=4.5ML, CD=4.4ML/HR DURING 16HRS, ED=2ML
     Route: 050
     Dates: start: 20191015, end: 20191104
  4. DUODOPA [Suspect]
     Active Substance: CARBIDOPA\LEVODOPA
     Dosage: MD=5.5ML, CD=4.5ML/HR DURING 16HRS, ED=2ML
     Route: 050
     Dates: start: 202001, end: 202001
  5. DUODOPA [Suspect]
     Active Substance: CARBIDOPA\LEVODOPA
     Dosage: MD=5.5ML, CD=4.6ML/HR DURING 16HRS, ED=2ML
     Route: 050
     Dates: start: 20191113, end: 202001
  6. DUODOPA [Suspect]
     Active Substance: CARBIDOPA\LEVODOPA
     Route: 050
     Dates: start: 20200109, end: 20200114
  7. XADAGO [Concomitant]
     Active Substance: SAFINAMIDE MESYLATE
     Indication: PARKINSON^S DISEASE
     Route: 048
  8. XADAGO [Concomitant]
     Active Substance: SAFINAMIDE MESYLATE
     Route: 048
     Dates: start: 20191120

REACTIONS (12)
  - Dyskinesia [Not Recovered/Not Resolved]
  - Malaise [Unknown]
  - Overdose [Unknown]
  - Gait disturbance [Unknown]
  - Fall [Recovered/Resolved]
  - Balance disorder [Unknown]
  - Device issue [Unknown]
  - Vertigo [Not Recovered/Not Resolved]
  - Dizziness [Unknown]
  - Speech disorder [Unknown]
  - Freezing phenomenon [Not Recovered/Not Resolved]
  - Dysuria [Recovered/Resolved]

NARRATIVE: CASE EVENT DATE: 2019
